FAERS Safety Report 4896789-8 (Version None)
Quarter: 2006Q1

REPORT INFORMATION
  Report Type: 
  Country: None (occurrence: None)
  Receive Date: 20060126
  Receipt Date: 20060113
  Transmission Date: 20060701
  Serious: Yes (Other)
  Sender: FDA-Public Use
  Company Number: 2005165800

PATIENT
  Age: 67 Year
  Sex: Female

DRUGS (5)
  1. ZYVOX [Suspect]
     Indication: OSTEOMYELITIS
     Dosage: 1200 MG (600 MG, 2 IN 1 D), ORAL
     Route: 048
  2. ANTIHYPERTENSIVE AGENT NOS (ANTIHYPERTENSIVES) [Concomitant]
  3. PLAVIX (CLOPIDOGREL) (CLOPIDOGREL SULFATE) [Concomitant]
  4. SALOSPIR (ACETYLSALICYLIC ACID (ACETYLSALICYLIC ACID) [Concomitant]
  5. FUNGUSTATIN (FLUCONAZOLE) (FLUCONAZOLE) [Concomitant]

REACTIONS (16)
  - ABDOMINAL PAIN UPPER [None]
  - ALANINE AMINOTRANSFERASE INCREASED [None]
  - ASPARTATE AMINOTRANSFERASE INCREASED [None]
  - DIARRHOEA [None]
  - DIZZINESS [None]
  - EATING DISORDER [None]
  - HAEMATOCRIT DECREASED [None]
  - HYPOTENSION [None]
  - INFLAMMATION [None]
  - INJECTION SITE REACTION [None]
  - LEUKOPENIA [None]
  - MYELOBLAST COUNT INCREASED [None]
  - NAUSEA [None]
  - SOMNOLENCE [None]
  - STOMATITIS [None]
  - VISION BLURRED [None]
